FAERS Safety Report 22245668 (Version 1)
Quarter: 2023Q2

REPORT INFORMATION
  Report Type: Spontaneous
  Country: PT (occurrence: PT)
  Receive Date: 20230424
  Receipt Date: 20230424
  Transmission Date: 20230721
  Serious: Yes (Hospitalization, Other)
  Sender: FDA-Public Use
  Company Number: PT-EMA-DD-20230412-5861859-105324

PATIENT

DRUGS (1)
  1. METFORMIN [Suspect]
     Active Substance: METFORMIN HYDROCHLORIDE
     Indication: Type 2 diabetes mellitus
     Dosage: 3000 MILLIGRAM, QD
     Route: 065

REACTIONS (3)
  - Lactic acidosis [Recovered/Resolved]
  - Hypochromic anaemia [Recovered/Resolved]
  - Renal impairment [Recovered/Resolved]
